FAERS Safety Report 4881824-3 (Version None)
Quarter: 2006Q1

REPORT INFORMATION
  Report Type: 
  Country: None (occurrence: None)
  Receive Date: 20060112
  Receipt Date: 20060112
  Transmission Date: 20060701
  Serious: Yes (Hospitalization, Other)
  Sender: FDA-Public Use
  Company Number: None

PATIENT
  Age: 6 Month
  Sex: Male

DRUGS (7)
  1. SYNAGIS [Suspect]
     Dosage: IM
     Route: 030
     Dates: start: 20051027
  2. .. [Concomitant]
  3. .. [Concomitant]
  4. PREVACID [Concomitant]
  5. REGLAN [Concomitant]
  6. PREDNISONE [Concomitant]
  7. ALBUTEROL [Concomitant]

REACTIONS (3)
  - ATELECTASIS [None]
  - BRONCHIOLITIS [None]
  - LUNG INFILTRATION [None]
